FAERS Safety Report 5121283-9 (Version None)
Quarter: 2006Q4

REPORT INFORMATION
  Report Type: 
  Country: None (occurrence: None)
  Receive Date: 20061002
  Receipt Date: 20060918
  Transmission Date: 20070319
  Serious: Yes (Other)
  Sender: FDA-Public Use
  Company Number: 2006113011

PATIENT
  Age: 65 Year
  Sex: Male
  Weight: 58.9676 kg

DRUGS (20)
  1. NEURONTIN [Suspect]
  2. ZOLOFT [Suspect]
  3. GLIPIZIDE [Suspect]
  4. CHANTIX [Suspect]
     Indication: SMOKING CESSATION THERAPY
  5. ALL OTHER THERAPEUTIC PRODUCTS (ALL OTHER THERAPEUTIC PRODUCTS) [Suspect]
     Indication: DYSPEPSIA
  6. ALL OTHER THERAPEUTIC PRODUCTS [Concomitant]
  7. LASIX [Concomitant]
  8. PREDNISONE TAB [Concomitant]
  9. IMITREX [Concomitant]
  10. OXYGEN [Concomitant]
  11. ADVAIR DISKUS 100/50 [Concomitant]
  12. SPIRIVA [Concomitant]
  13. ALBUTEROL [Concomitant]
  14. SEROQUEL [Concomitant]
  15. SEROQUEL [Concomitant]
  16. LEVOTHYROXINE SODIUM [Concomitant]
  17. PLETAL (CILOSTAZOL) [Concomitant]
  18. LAMICTAL [Concomitant]
  19. KLONOPIN [Concomitant]
  20. PLAVIX [Concomitant]

REACTIONS (5)
  - BLINDNESS UNILATERAL [None]
  - DRUG WITHDRAWAL SYNDROME [None]
  - DYSPEPSIA [None]
  - RETINAL DISORDER [None]
  - TREATMENT NONCOMPLIANCE [None]
